FAERS Safety Report 19056181 (Version 1)
Quarter: 2021Q1

REPORT INFORMATION
  Report Type: Spontaneous
  Country: US (occurrence: US)
  Receive Date: 20210324
  Receipt Date: 20210324
  Transmission Date: 20210420
  Serious: Yes (Other)
  Sender: FDA-Public Use
  Company Number: US-ELI_LILLY_AND_COMPANY-US202103009707

PATIENT
  Age: 73 Year
  Sex: Male

DRUGS (3)
  1. HUMALOG KWIKPEN [Suspect]
     Active Substance: INSULIN LISPRO
     Indication: TYPE 2 DIABETES MELLITUS
     Dosage: 64 U, DAILY
     Route: 058
     Dates: start: 1990
  2. HUMALOG KWIKPEN [Suspect]
     Active Substance: INSULIN LISPRO
     Dosage: 64 U, DAILY
     Route: 058
  3. LANTUS [Concomitant]
     Active Substance: INSULIN GLARGINE
     Indication: TYPE 2 DIABETES MELLITUS
     Dosage: 48 U, DAILY (AT NIGHT)

REACTIONS (4)
  - Cerebrovascular accident [Unknown]
  - Incorrect dose administered [Unknown]
  - COVID-19 [Unknown]
  - Visual impairment [Unknown]

NARRATIVE: CASE EVENT DATE: 202007
